FAERS Safety Report 7919522-1 (Version None)
Quarter: 2011Q4

REPORT INFORMATION
  Report Type: 
  Country: None (occurrence: None)
  Receive Date: 20111115
  Receipt Date: 20111101
  Transmission Date: 20120403
  Serious: Yes (Death)
  Sender: FDA-Public Use
  Company Number: 1000025153

PATIENT
  Age: 72 Year
  Sex: Male

DRUGS (1)
  1. VIIBRYD [Suspect]

REACTIONS (2)
  - GUN SHOT WOUND [None]
  - COMPLETED SUICIDE [None]
